FAERS Safety Report 9994600 (Version 1)
Quarter: 2014Q1

REPORT INFORMATION
  Report Type: Spontaneous
  Country: GB (occurrence: GB)
  Receive Date: 20140311
  Receipt Date: 20140311
  Transmission Date: 20141002
  Serious: Yes (Hospitalization, Other)
  Sender: FDA-Public Use
  Company Number: GB-BRISTOL-MYERS SQUIBB COMPANY-20388583

PATIENT
  Age: 45 Year
  Sex: Male
  Weight: 84.9 kg

DRUGS (2)
  1. ARIPIPRAZOLE [Suspect]
     Indication: PSYCHOTIC DISORDER
     Route: 048
     Dates: start: 20140127, end: 20140212
  2. LOFEPRAMINE [Suspect]
     Indication: DEPRESSION
     Route: 048
     Dates: start: 20140131, end: 20140212

REACTIONS (6)
  - Chest X-ray abnormal [Unknown]
  - Liver function test abnormal [Recovering/Resolving]
  - Pyrexia [Recovering/Resolving]
  - Jaundice [Recovering/Resolving]
  - Sputum purulent [Unknown]
  - Off label use [Unknown]
